FAERS Safety Report 17054153 (Version 1)
Quarter: 2019Q4

REPORT INFORMATION
  Report Type: Spontaneous
  Country: US (occurrence: US)
  Receive Date: 20191120
  Receipt Date: 20191120
  Transmission Date: 20200122
  Serious: Yes (Other)
  Sender: FDA-Public Use
  Company Number: US-COOPERSURGICAL, INC.-US-2019CPS003496

PATIENT
  Age: 26 Year
  Sex: Female

DRUGS (2)
  1. BALANCED B-100 [Concomitant]
     Indication: VITAMIN SUPPLEMENTATION
     Dosage: UNK
     Route: 065
  2. PARAGARD T 380A [Suspect]
     Active Substance: COPPER
     Indication: CONTRACEPTION
     Dosage: UNK
     Route: 015
     Dates: start: 20190903, end: 20190905

REACTIONS (3)
  - Uterine cervical pain [Unknown]
  - Abdominal pain [Unknown]
  - Cervicitis [Unknown]

NARRATIVE: CASE EVENT DATE: 20190904
